FAERS Safety Report 20136594 (Version 1)
Quarter: 2021Q4

REPORT INFORMATION
  Report Type: Spontaneous
  Country: US (occurrence: None)
  Receive Date: 20211201
  Receipt Date: 20211201
  Transmission Date: 20220303
  Serious: Yes (Hospitalization)
  Sender: FDA-Public Use
  Company Number: None

PATIENT
  Sex: Female

DRUGS (2)
  1. PROCRIT [Suspect]
     Active Substance: ERYTHROPOIETIN
     Indication: Myelodysplastic syndrome
     Dosage: OTHER FREQUENCY : ONCE WEEKLY;?
     Route: 058
     Dates: start: 20211124
  2. VENCLEXTA [Concomitant]
     Active Substance: VENETOCLAX
     Dates: start: 20211124

REACTIONS (5)
  - Pain in extremity [None]
  - Loss of personal independence in daily activities [None]
  - Asthenia [None]
  - Fear [None]
  - Illness [None]
